FAERS Safety Report 5680473-7 (Version None)
Quarter: 2008Q1

REPORT INFORMATION
  Report Type: 
  Country: None (occurrence: None)
  Receive Date: 20080326
  Receipt Date: 20080317
  Transmission Date: 20080703
  Serious: Yes (Other)
  Sender: FDA-Public Use
  Company Number: B0513639A

PATIENT
  Age: 23 Year
  Sex: Male

DRUGS (1)
  1. ELONTRIL [Suspect]
     Indication: DRUG USE FOR UNKNOWN INDICATION
     Dosage: 150MG UNKNOWN

REACTIONS (5)
  - AGITATION [None]
  - DEPERSONALISATION [None]
  - DEREALISATION [None]
  - PSYCHOTIC DISORDER [None]
  - SUICIDAL IDEATION [None]
